FAERS Safety Report 6541580-X (Version None)
Quarter: 2010Q1

REPORT INFORMATION
  Report Type: 
  Country: None (occurrence: None)
  Receive Date: 20100119
  Receipt Date: 20100113
  Transmission Date: 20100710
  Serious: Yes (Death)
  Sender: FDA-Public Use
  Company Number: US-ROCHE-679450

PATIENT
  Sex: Female

DRUGS (1)
  1. XELODA [Suspect]
     Dosage: DOSE: THREE TABLETS
     Route: 048
     Dates: start: 20090501, end: 20091101

REACTIONS (2)
  - COLON CANCER METASTATIC [None]
  - MALIGNANT NEOPLASM PROGRESSION [None]
